FAERS Safety Report 20636603 (Version 2)
Quarter: 2022Q3

REPORT INFORMATION
  Report Type: Spontaneous
  Country: US (occurrence: US)
  Receive Date: 20220325
  Receipt Date: 20220805
  Transmission Date: 20221027
  Serious: Yes (Other)
  Sender: FDA-Public Use
  Company Number: US-VERTEX PHARMACEUTICALS-2022-004598

PATIENT
  Age: 28 Year
  Sex: Female
  Weight: 71 kg

DRUGS (14)
  1. TRIKAFTA [Suspect]
     Active Substance: ELEXACAFTOR\IVACAFTOR\TEZACAFTOR
     Indication: Cystic fibrosis
     Dosage: (2 ORANGE TABS) AM; (1 BLUE TAB) PM
     Route: 048
     Dates: start: 20211208
  2. AZTREONAM LYSINE [Suspect]
     Active Substance: AZTREONAM LYSINE
     Indication: Cystic fibrosis
     Dosage: 75 MG; 28 DAYS ON; 28 DAYS OFF
  3. COLISTIMETHATE SODIUM [Concomitant]
     Active Substance: COLISTIMETHATE SODIUM
  4. COLISTIN SULFATE [Concomitant]
     Active Substance: COLISTIN SULFATE
  5. TOBI [Concomitant]
     Active Substance: TOBRAMYCIN
  6. PULMOZYME [Concomitant]
     Active Substance: DORNASE ALFA
  7. BUDESONIDE\FORMOTEROL\GLYCOPYRRONIUM [Concomitant]
     Active Substance: BUDESONIDE\FORMOTEROL\GLYCOPYRRONIUM
  8. PROZAC [Concomitant]
     Active Substance: FLUOXETINE HYDROCHLORIDE
  9. VYVANSE [Concomitant]
     Active Substance: LISDEXAMFETAMINE DIMESYLATE
  10. MAGNESIUM [Concomitant]
     Active Substance: MAGNESIUM
  11. VITAMIN C [Concomitant]
     Active Substance: ASCORBIC ACID
  12. KEPPRA [Concomitant]
     Active Substance: LEVETIRACETAM
  13. VITAMIN D2 [Concomitant]
     Active Substance: ERGOCALCIFEROL
  14. TRINTELLIX [Concomitant]
     Active Substance: VORTIOXETINE HYDROBROMIDE

REACTIONS (5)
  - Cystic fibrosis [Unknown]
  - Depression [Unknown]
  - Infective pulmonary exacerbation of cystic fibrosis [Unknown]
  - Speech disorder [Unknown]
  - Hypersensitivity [Not Recovered/Not Resolved]

NARRATIVE: CASE EVENT DATE: 20220201
